FAERS Safety Report 13363384 (Version 1)
Quarter: 2017Q1

REPORT INFORMATION
  Report Type: Spontaneous
  Country: ES (occurrence: ES)
  Receive Date: 20170323
  Receipt Date: 20170323
  Transmission Date: 20170429
  Serious: Yes (Hospitalization)
  Sender: FDA-Public Use
  Company Number: ALCN2017ES002102

PATIENT
  Age: 4 Year
  Sex: Male

DRUGS (1)
  1. CYCLOPENTOLATE HCL [Suspect]
     Active Substance: CYCLOPENTOLATE HYDROCHLORIDE
     Indication: PRODUCT USED FOR UNKNOWN INDICATION
     Dosage: 17 GTT, UNK
     Route: 047
     Dates: start: 20170313

REACTIONS (3)
  - Somnolence [Recovering/Resolving]
  - Overdose [Recovering/Resolving]
  - Incorrect dosage administered [Recovering/Resolving]

NARRATIVE: CASE EVENT DATE: 20170313
